FAERS Safety Report 25114902 (Version 1)
Quarter: 2025Q1

REPORT INFORMATION
  Report Type: Spontaneous
  Country: CZ (occurrence: CZ)
  Receive Date: 20250324
  Receipt Date: 20250324
  Transmission Date: 20250409
  Serious: Yes (Death)
  Sender: MYLAN
  Company Number: CZ-IG-202500085

PATIENT
  Age: 20 Year
  Sex: Female

DRUGS (1)
  1. FENTANYL [Suspect]
     Active Substance: FENTANYL
     Indication: Product used for unknown indication

REACTIONS (3)
  - Circulatory collapse [Fatal]
  - Intentional product misuse [Fatal]
  - Toxicity to various agents [Fatal]
